FAERS Safety Report 5663914-0 (Version None)
Quarter: 2008Q1

REPORT INFORMATION
  Report Type: 
  Country: None (occurrence: None)
  Receive Date: 20080311
  Receipt Date: 20080227
  Transmission Date: 20080703
  Serious: Yes (Hospitalization)
  Sender: FDA-Public Use
  Company Number: GXKR2008JP02105

PATIENT
  Age: 70 Year
  Sex: Male

DRUGS (4)
  1. RIFAMPICIN [Suspect]
     Indication: TUBERCULOSIS
     Dosage: 450 MG/DAY
  2. ISONIAZID [Suspect]
     Indication: TUBERCULOSIS
     Dosage: 300 MG/DAY
  3. ETHAMBUTAOL(ETHAMBUTOL) UNKNOWN [Suspect]
     Dosage: 750 MG/DAY
  4. PYRAZINAMIDE [Suspect]
     Indication: TUBERCULOSIS
     Dosage: 1.2 G/DAY

REACTIONS (6)
  - DEHYDRATION [None]
  - DRUG ERUPTION [None]
  - LIVER DISORDER [None]
  - RENAL FAILURE ACUTE [None]
  - RESIDUAL URINE [None]
  - SKIN EXFOLIATION [None]
